FAERS Safety Report 9258429 (Version 1)
Quarter: 2013Q2

REPORT INFORMATION
  Report Type: Spontaneous
  Country: SK (occurrence: SK)
  Receive Date: 20130426
  Receipt Date: 20130426
  Transmission Date: 20140414
  Serious: Yes (Other)
  Sender: FDA-Public Use
  Company Number: PHHY2013SK017452

PATIENT
  Age: 57 Year
  Sex: Male

DRUGS (6)
  1. TACROLIMUS [Suspect]
     Indication: IMMUNOSUPPRESSION
     Dosage: 0.15 MG/KG, UNK
  2. TACROLIMUS [Suspect]
     Dosage: 0.05 MG/KG, UNK
  3. TACROLIMUS [Suspect]
     Dosage: 0.03 MG/KG, UNK
  4. MYCOPHENOLATE MOFETIL [Concomitant]
     Indication: IMMUNOSUPPRESSION
  5. CORTICOSTEROIDS [Concomitant]
     Indication: IMMUNOSUPPRESSION
  6. BASILIXIMAB [Concomitant]
     Indication: IMMUNOSUPPRESSION

REACTIONS (9)
  - Hypoaldosteronism [Unknown]
  - Polyuria [Unknown]
  - Hydronephrosis [Unknown]
  - Nephrotic syndrome [Recovering/Resolving]
  - Complications of transplant surgery [Recovered/Resolved]
  - Hyperkalaemia [Recovering/Resolving]
  - Hypertension [Recovering/Resolving]
  - Neurotoxicity [Recovered/Resolved]
  - Metabolic acidosis [Unknown]
